FAERS Safety Report 8573434-1 (Version None)
Quarter: 2012Q3

REPORT INFORMATION
  Report Type: 
  Country: None (occurrence: None)
  Receive Date: 20120806
  Receipt Date: 20080701
  Transmission Date: 20120928
  Serious: Yes (Other)
  Sender: FDA-Public Use
  Company Number: CO-PFIZER INC-2012184914

PATIENT
  Age: 58 Year
  Sex: Female

DRUGS (8)
  1. LIPITOR [Suspect]
     Indication: DYSLIPIDAEMIA
     Dosage: 10 MG, 1X/DAY
  2. OLMESARTAN MEDOXOMIL AND HYDROCHLOROTHIZIDE [Suspect]
     Indication: HYPERTENSION
     Dosage: [OLMESARTAN MEDOXOMIL 20 MG/ HYDROCHLOROTHIAZIDE 12.5 MG], 1X/DAY
  3. GLIBENCLAMIDE [Concomitant]
     Dosage: 5 MG, 2X/DAY
  4. HYDROCHLOROTHIAZIDE [Concomitant]
     Dosage: 25 MG, 1X/DAY
  5. OLMESARTAN MEDOXOMIL [Suspect]
     Indication: HYPERTENSION
     Dosage: 20 MG, 1X/DAY
  6. AMLODIPINE [Concomitant]
     Dosage: 5 MG, 1X/DAY
  7. LOSARTAN [Concomitant]
     Dosage: 50 MG, 2X/DAY
  8. NORVASC [Suspect]
     Indication: HYPERTENSION
     Dosage: 5 MG, 1X/DAY

REACTIONS (4)
  - HAEMATURIA [None]
  - PAIN IN EXTREMITY [None]
  - LEUKOCYTURIA [None]
  - CHEST PAIN [None]
